FAERS Safety Report 10012752 (Version 1)
Quarter: 2014Q1

REPORT INFORMATION
  Report Type: Spontaneous
  Country: US (occurrence: None)
  Receive Date: 20140304
  Receipt Date: 20140304
  Transmission Date: 20141002
  Serious: Yes (Hospitalization, Other)
  Sender: FDA-Public Use
  Company Number: RB-58291-2013

PATIENT
  Age: 4 Year
  Sex: Female

DRUGS (2)
  1. SUBOXONE 8 MG [Suspect]
     Indication: DRUG DEPENDENCE
     Dosage: (MOTHER WAS TAKING VARIOUS DOSES OF SUBOXONE TABLET TRANSPLACENTAL)
     Route: 064
     Dates: start: 2008, end: 20090603
  2. NICOTINE (NONE) [Suspect]
     Indication: NICOTINE DEPENDENCE
     Dosage: (DOSING REGIMEN: 10 CIGARETTES DAILY TRANSPLACENTAL)
     Route: 064
     Dates: start: 2008, end: 20090603

REACTIONS (2)
  - Foetal exposure during pregnancy [None]
  - Drug withdrawal syndrome neonatal [None]
